FAERS Safety Report 8762170 (Version 1)
Quarter: 2012Q4

REPORT INFORMATION
  Report Type: 
  Country: US (occurrence: US)
  Receive Date: 20120830
  Receipt Date: 20120830
  Transmission Date: 20130627
  Serious: No
  Sender: FDA-Public Use
  Company Number: US-B.I. PHARMACEUTICALS,INC./RIDGEFIELD-2012-BP-20810BP

PATIENT
  Age: 75 Year
  Sex: Female

DRUGS (3)
  1. SPIRIVA [Suspect]
     Indication: ASTHMA
     Dosage: 18 mcg
     Route: 055
     Dates: start: 201203, end: 201206
  2. MAXAIR [Concomitant]
     Indication: INHALATION THERAPY
     Route: 055
  3. CO 24 [Concomitant]
     Indication: ASTHMA
     Route: 048

REACTIONS (4)
  - Lip swelling [Not Recovered/Not Resolved]
  - Lip injury [Not Recovered/Not Resolved]
  - Lip exfoliation [Not Recovered/Not Resolved]
  - Urinary tract infection [Recovered/Resolved]
